FAERS Safety Report 13186650 (Version 1)
Quarter: 2017Q1

REPORT INFORMATION
  Report Type: Spontaneous
  Country: DK (occurrence: DK)
  Receive Date: 20170205
  Receipt Date: 20170205
  Transmission Date: 20170428
  Serious: Yes (Hospitalization)
  Sender: FDA-Public Use
  Company Number: PHHY2017DK011969

PATIENT
  Age: 79 Year
  Sex: Female

DRUGS (6)
  1. ANCOZAN [Suspect]
     Active Substance: LOSARTAN POTASSIUM
     Indication: HYPERTENSION
     Dosage: UNK
     Route: 048
     Dates: end: 20161214
  2. MAGNESIUM [Concomitant]
     Active Substance: MAGNESIUM
     Indication: MUSCLE SPASMS
     Route: 065
  3. CENTYL MED KALIUMKLORID [Suspect]
     Active Substance: BENDROFLUMETHIAZIDE\POTASSIUM CHLORIDE
     Indication: HYPERTENSION
     Dosage: 2 DF, QD
     Route: 048
     Dates: end: 20161214
  4. QUETIAPINE. [Concomitant]
     Active Substance: QUETIAPINE
     Indication: BIPOLAR DISORDER
     Route: 065
  5. LITAREX [Suspect]
     Active Substance: LITHIUM CITRATE
     Indication: BIPOLAR DISORDER
     Dosage: 12 MMOL, QD
     Route: 048
  6. ELTROXIN [Concomitant]
     Active Substance: LEVOTHYROXINE
     Indication: HYPOTHYROIDISM
     Route: 065

REACTIONS (4)
  - Toxicity to various agents [Recovered/Resolved]
  - Fall [Unknown]
  - Dizziness [Unknown]
  - Dehydration [Recovered/Resolved]

NARRATIVE: CASE EVENT DATE: 20161214
